FAERS Safety Report 12328199 (Version 1)
Quarter: 2016Q2

REPORT INFORMATION
  Report Type: Spontaneous
  Country: US (occurrence: US)
  Receive Date: 20160503
  Receipt Date: 20160503
  Transmission Date: 20160815
  Serious: No
  Sender: FDA-Public Use
  Company Number: US-PERRIGO-16US000245

PATIENT
  Age: 39 Year
  Sex: Female

DRUGS (1)
  1. NAPROXEN SODIUM-PSEUDOEPHEDRINE HYDROCHLORIDE [Suspect]
     Active Substance: NAPROXEN SODIUM\PSEUDOEPHEDRINE HYDROCHLORIDE
     Indication: NASOPHARYNGITIS
     Dosage: 2 TABLETS, SINGLE
     Route: 048
     Dates: start: 20160106, end: 20160106

REACTIONS (4)
  - Dyspnoea [Recovered/Resolved]
  - Incorrect dose administered [Recovered/Resolved]
  - Insomnia [Unknown]
  - Chest pain [Recovered/Resolved]

NARRATIVE: CASE EVENT DATE: 20160106
